FAERS Safety Report 25503987 (Version 1)
Quarter: 2025Q2

REPORT INFORMATION
  Report Type: Spontaneous
  Country: US (occurrence: None)
  Receive Date: 20250630
  Receipt Date: 20250630
  Transmission Date: 20250716
  Serious: No
  Sender: FDA-CTU
  Company Number: None

PATIENT

DRUGS (2)
  1. OPSUMIT [Suspect]
     Active Substance: MACITENTAN
  2. OFEV [Suspect]
     Active Substance: NINTEDANIB

REACTIONS (2)
  - Cervical spinal stenosis [None]
  - Lung disorder [None]
